FAERS Safety Report 9557782 (Version 1)
Quarter: 2013Q3

REPORT INFORMATION
  Report Type: Spontaneous
  Country: ES (occurrence: None)
  Receive Date: 20130911
  Receipt Date: 20130911
  Transmission Date: 20140515
  Serious: Yes (Hospitalization)
  Sender: FDA-Public Use
  Company Number: 2013-01367

PATIENT
  Age: 41 Year
  Sex: Female

DRUGS (3)
  1. LORAZEPAM (UNKNOWN) [Suspect]
     Indication: PRODUCT USED FOR UNKNOWN INDICATION
     Dosage: 36 MG (UNKNOWN, UNKNOWN), ORAL
     Route: 048
  2. VENLAFAXINE [Suspect]
     Indication: PRODUCT USED FOR UNKNOWN INDICATION
     Dosage: 4500 MG (UNKNOWN, UNKNOWN), ORAL
     Route: 048
  3. PAROXETINE (UNKNOWN) [Suspect]
     Indication: PRODUCT USED FOR UNKNOWN INDICATION
     Dosage: 400 MG (UNKNOWN, UNKNOWN), ORAL
     Route: 048

REACTIONS (3)
  - Hypoglycaemia [None]
  - Hypotonia [None]
  - Overdose [None]
